FAERS Safety Report 4332975-3 (Version None)
Quarter: 2004Q2

REPORT INFORMATION
  Report Type: 
  Country: None (occurrence: None)
  Receive Date: 20040406
  Receipt Date: 20030411
  Transmission Date: 20050107
  Serious: Yes (Hospitalization, Disabling)
  Sender: FDA-Public Use
  Company Number: US-MERCK-0304USA01434

PATIENT
  Age: 54 Year
  Sex: Female
  Weight: 61 kg

DRUGS (3)
  1. PROZAC [Concomitant]
     Route: 065
     Dates: start: 19980101, end: 20000101
  2. INTERFERON (UNSPECIFIED) [Concomitant]
     Route: 065
  3. VIOXX [Suspect]
     Indication: ARTHRITIS
     Route: 048
     Dates: end: 20001001

REACTIONS (29)
  - ACUTE MYOCARDIAL INFARCTION [None]
  - ACUTE RESPIRATORY DISTRESS SYNDROME [None]
  - ANAEMIA [None]
  - ASPIRATION [None]
  - CARDIAC ARREST [None]
  - CARDIOGENIC SHOCK [None]
  - CATHETER SEPSIS [None]
  - CORONARY ARTERY ATHEROSCLEROSIS [None]
  - CORONARY ARTERY OCCLUSION [None]
  - DEEP VEIN THROMBOSIS [None]
  - DEPRESSION [None]
  - DIARRHOEA [None]
  - HEPATIC FAILURE [None]
  - HYPERTENSION [None]
  - INTERVERTEBRAL DISC DISORDER [None]
  - INTRACARDIAC THROMBUS [None]
  - LACTIC ACIDOSIS [None]
  - MITRAL VALVE INCOMPETENCE [None]
  - MYOCARDIAL ISCHAEMIA [None]
  - OSTEOARTHRITIS [None]
  - PNEUMONIA ASPIRATION [None]
  - PYREXIA [None]
  - RENAL INFARCT [None]
  - RESPIRATORY FAILURE [None]
  - SPLENIC INFARCTION [None]
  - THERAPY NON-RESPONDER [None]
  - THROMBOSIS [None]
  - VENTRICULAR HYPOKINESIA [None]
  - VOMITING [None]
